FAERS Safety Report 8886592 (Version 26)
Quarter: 2016Q4

REPORT INFORMATION
  Report Type: Report from Study
  Country: LB (occurrence: LB)
  Receive Date: 20121105
  Receipt Date: 20161128
  Transmission Date: 20170207
  Serious: No
  Sender: FDA-Public Use
  Company Number: PHHY2012LB067098

PATIENT
  Age: 43 Year
  Sex: Female

DRUGS (6)
  1. AUGMENTIN [Suspect]
     Active Substance: AMOXICILLIN\CLAVULANATE POTASSIUM
     Indication: INFLUENZA
     Dosage: 1 DF, Q12H
     Route: 065
     Dates: end: 20121031
  2. DORIXINA//CLONIXIN [Concomitant]
     Indication: PRODUCT USED FOR UNKNOWN INDICATION
     Dosage: PRN (SOS)
     Route: 048
  3. TASIGNA [Suspect]
     Active Substance: NILOTINIB
     Indication: CHRONIC MYELOID LEUKAEMIA
     Dosage: 600 MG, QD
     Route: 048
     Dates: start: 201204
  4. LADININ [Suspect]
     Active Substance: CIPROFLOXACIN HYDROCHLORIDE
     Indication: INFLUENZA
     Dosage: 1 DF, Q12H
     Route: 048
     Dates: end: 20121031
  5. TASIGNA [Suspect]
     Active Substance: NILOTINIB
     Dosage: 1200 MG (600 MG DOUBLE DOSE)
     Route: 048
     Dates: start: 20150816
  6. XYZAL [Concomitant]
     Active Substance: LEVOCETIRIZINE DIHYDROCHLORIDE
     Indication: PRODUCT USED FOR UNKNOWN INDICATION
     Dosage: 1 DF, QD (PER DAY)
     Route: 048

REACTIONS (37)
  - Infection [Unknown]
  - Tonsillitis [Recovered/Resolved]
  - Tooth abscess [Recovered/Resolved]
  - Rash [Not Recovered/Not Resolved]
  - Face oedema [Recovering/Resolving]
  - Cough [Not Recovered/Not Resolved]
  - Accidental overdose [Unknown]
  - Abdominal pain [Not Recovered/Not Resolved]
  - Visual impairment [Unknown]
  - Headache [Not Recovered/Not Resolved]
  - Dizziness [Unknown]
  - Impatience [Not Recovered/Not Resolved]
  - Tonsillitis [Recovering/Resolving]
  - Dermatitis allergic [Not Recovered/Not Resolved]
  - Abdominal pain upper [Recovering/Resolving]
  - Breast pain [Not Recovered/Not Resolved]
  - Lip oedema [Not Recovered/Not Resolved]
  - Vitamin B12 decreased [Not Recovered/Not Resolved]
  - Hypersensitivity [Not Recovered/Not Resolved]
  - Furuncle [Recovering/Resolving]
  - Rash pustular [Recovering/Resolving]
  - Erythema [Unknown]
  - Leukocytosis [Not Recovered/Not Resolved]
  - Granuloma skin [Not Recovered/Not Resolved]
  - Influenza [Recovered/Resolved]
  - Gingival oedema [Unknown]
  - Fatigue [Recovering/Resolving]
  - Alopecia [Not Recovered/Not Resolved]
  - Gallbladder disorder [Unknown]
  - Pyrexia [Recovering/Resolving]
  - Rheumatic disorder [Unknown]
  - Feeling hot [Not Recovered/Not Resolved]
  - Influenza [Recovered/Resolved]
  - Swelling [Recovering/Resolving]
  - Paraesthesia oral [Not Recovered/Not Resolved]
  - Gingivitis [Not Recovered/Not Resolved]
  - Influenza [Recovering/Resolving]

NARRATIVE: CASE EVENT DATE: 201208
